FAERS Safety Report 8944387 (Version 2)
Quarter: 2012Q4

REPORT INFORMATION
  Report Type: 
  Country: US (occurrence: US)
  Receive Date: 20121204
  Receipt Date: 20121217
  Transmission Date: 20130627
  Serious: Yes (Hospitalization)
  Sender: FDA-Public Use
  Company Number: US-AMGEN-USASP2012065148

PATIENT
  Age: 71 Year
  Sex: Male

DRUGS (6)
  1. ENBREL [Suspect]
     Indication: PSORIASIS
     Dosage: 50 mg biweekly
     Route: 058
     Dates: start: 20120607
  2. SIMVASTATIN [Concomitant]
     Dosage: 20 mg, qd
     Route: 048
  3. LISINOPRIL [Concomitant]
     Dosage: 2.5 mg, qd
     Route: 048
  4. METFORMIN [Concomitant]
     Dosage: 1000 mg, bid
     Route: 048
  5. DOXYCYCLINE HYCLATE [Concomitant]
     Dosage: 100 mg, bid
     Route: 048
  6. SALMON OIL [Concomitant]
     Dosage: UNK

REACTIONS (20)
  - Tuberculin test positive [Unknown]
  - Local swelling [Unknown]
  - Swelling face [Unknown]
  - Oedema peripheral [Unknown]
  - Dermatitis herpetiformis [Unknown]
  - Rash [Unknown]
  - Dry skin [Unknown]
  - Pruritus [Unknown]
  - Erythema [Unknown]
  - Pain [Unknown]
  - Scab [Unknown]
  - Papule [Unknown]
  - Skin lesion [Unknown]
  - Asthenia [Unknown]
  - Nodule [Unknown]
  - Varicella [Unknown]
  - Psoriasis [Unknown]
  - Herpes zoster [Unknown]
  - Herpes simplex [Unknown]
  - Atypical mycobacterial infection [Unknown]
